FAERS Safety Report 5508956-0 (Version None)
Quarter: 2007Q4

REPORT INFORMATION
  Report Type: 
  Country: None (occurrence: None)
  Receive Date: 20071031
  Receipt Date: 20070813
  Transmission Date: 20080405
  Serious: No
  Sender: FDA-Public Use
  Company Number: 2007PV033284

PATIENT
  Age: 28 Year
  Sex: Female

DRUGS (7)
  1. SYMLIN [Suspect]
     Indication: TYPE 1 DIABETES MELLITUS
     Dosage: 60 MCG; TID; SC, 45 MCG; TID; SC, 45 MCG; TID;SC, 30 MCG; TID; SC, 15 MCG; TID; SC
     Route: 058
     Dates: start: 20070101, end: 20070101
  2. SYMLIN [Suspect]
     Indication: TYPE 1 DIABETES MELLITUS
     Dosage: 60 MCG; TID; SC, 45 MCG; TID; SC, 45 MCG; TID;SC, 30 MCG; TID; SC, 15 MCG; TID; SC
     Route: 058
     Dates: start: 20070701, end: 20070101
  3. SYMLIN [Suspect]
     Indication: TYPE 1 DIABETES MELLITUS
     Dosage: 60 MCG; TID; SC, 45 MCG; TID; SC, 45 MCG; TID;SC, 30 MCG; TID; SC, 15 MCG; TID; SC
     Route: 058
     Dates: start: 20070801, end: 20070801
  4. SYMLIN [Suspect]
     Indication: TYPE 1 DIABETES MELLITUS
     Dosage: 60 MCG; TID; SC, 45 MCG; TID; SC, 45 MCG; TID;SC, 30 MCG; TID; SC, 15 MCG; TID; SC
     Route: 058
     Dates: start: 20070801
  5. LANTUS [Concomitant]
  6. NOVOLOG [Concomitant]
  7. MIRENA [Concomitant]

REACTIONS (1)
  - RASH VESICULAR [None]
